FAERS Safety Report 9354110 (Version 1)
Quarter: 2013Q2

REPORT INFORMATION
  Report Type: Spontaneous
  Country: US (occurrence: None)
  Receive Date: 20130613
  Receipt Date: 20130613
  Transmission Date: 20140414
  Serious: Yes (Other)
  Sender: FDA-Public Use
  Company Number: MC201300323

PATIENT
  Sex: 0

DRUGS (3)
  1. ANGIOMAX, ANGIOX (BIVALIRUDIN) INJECTION [Suspect]
     Indication: PERCUTANEOUS CORONARY INTERVENTION
     Route: 042
     Dates: start: 20130603
  2. TICAGRELOR [Concomitant]
  3. ASPIRIN [Concomitant]

REACTIONS (2)
  - Myocardial infarction [None]
  - Thrombosis in device [None]
